FAERS Safety Report 17414446 (Version 3)
Quarter: 2020Q1

REPORT INFORMATION
  Report Type: Spontaneous
  Country: US (occurrence: US)
  Receive Date: 20200213
  Receipt Date: 20200220
  Transmission Date: 20200409
  Serious: Yes (Other)
  Sender: FDA-Public Use
  Company Number: US-PFIZER INC-2020062347

PATIENT
  Age: 83 Year
  Sex: Male
  Weight: 71 kg

DRUGS (6)
  1. BINIMETINIB [Concomitant]
     Active Substance: BINIMETINIB
     Dosage: 3 DF, DAILY (1 TAB IN THE AM AND 2 TABS IN THE PM)
  2. MEKTOVI [Suspect]
     Active Substance: BINIMETINIB
     Dosage: UNK
     Dates: end: 20200204
  3. ENCORAFENIB [Concomitant]
     Active Substance: ENCORAFENIB
     Dosage: 3 DF (TABS), DAILY
  4. BRAFTOVI [Suspect]
     Active Substance: ENCORAFENIB
     Indication: METASTATIC MALIGNANT MELANOMA
     Dosage: UNK
     Dates: end: 201903
  5. BRAFTOVI [Suspect]
     Active Substance: ENCORAFENIB
     Dosage: UNK
     Dates: end: 20200204
  6. MEKTOVI [Suspect]
     Active Substance: BINIMETINIB
     Indication: METASTATIC MALIGNANT MELANOMA
     Dosage: UNK
     Dates: end: 201903

REACTIONS (3)
  - Urinary tract infection [Not Recovered/Not Resolved]
  - Haematuria [Recovered/Resolved]
  - Transaminases increased [Unknown]

NARRATIVE: CASE EVENT DATE: 20200203
